FAERS Safety Report 10504186 (Version 1)
Quarter: 2014Q4

REPORT INFORMATION
  Report Type: Spontaneous
  Country: US (occurrence: US)
  Receive Date: 20141008
  Receipt Date: 20141008
  Transmission Date: 20150528
  Serious: No
  Sender: FDA-Public Use
  Company Number: US-BEH-2014042052

PATIENT
  Sex: Female
  Weight: 58 kg

DRUGS (14)
  1. DIPHENHYDRAMINE [Concomitant]
     Active Substance: DIPHENHYDRAMINE
  2. ZOLOFT [Concomitant]
     Active Substance: SERTRALINE HYDROCHLORIDE
     Route: 048
  3. EPIPEN [Concomitant]
     Active Substance: EPINEPHRINE
  4. SKELAXIN [Concomitant]
     Active Substance: METAXALONE
     Route: 048
  5. METOPROLOL [Concomitant]
     Active Substance: METOPROLOL
     Route: 048
  6. PRIVIGEN [Suspect]
     Active Substance: HUMAN IMMUNOGLOBULIN G
     Indication: CHRONIC INFLAMMATORY DEMYELINATING POLYRADICULONEUROPATHY
     Dosage: 10 GM; INFUSE OVER 6-8 HOURS
     Route: 042
  7. VALPROATE [Concomitant]
     Active Substance: VALPROATE SODIUM
  8. NORMAL SALINE [Concomitant]
     Active Substance: SODIUM CHLORIDE
  9. VALIUM [Concomitant]
     Active Substance: DIAZEPAM
     Route: 048
  10. GAMUNEX [Concomitant]
     Active Substance: HUMAN IMMUNOGLOBULIN G
  11. KETOROLAC TRIMETHAMINE [Concomitant]
  12. SODIUM CHLORIDE. [Concomitant]
     Active Substance: SODIUM CHLORIDE
  13. ALL OTHER THERAPEUTIC PRODUCTS [Concomitant]
     Active Substance: UNSPECIFIED INGREDIENT
  14. DIVALPROEX [Concomitant]
     Active Substance: DIVALPROEX SODIUM
     Route: 048

REACTIONS (3)
  - Diarrhoea [Not Recovered/Not Resolved]
  - Asthenia [Unknown]
  - Vomiting [Unknown]
